FAERS Safety Report 6544457-9 (Version None)
Quarter: 2010Q1

REPORT INFORMATION
  Report Type: 
  Country: None (occurrence: None)
  Receive Date: 20100106
  Receipt Date: 20091108
  Transmission Date: 20100710
  Serious: No
  Sender: FDA-Public Use
  Company Number: 007912

PATIENT
  Age: 73 Year
  Sex: Male

DRUGS (18)
  1. PLETAL [Suspect]
     Indication: CEREBRAL INFARCTION
     Dosage: 100 MG, BID ORAL
     Route: 048
     Dates: end: 20090926
  2. ASPIRIN [Suspect]
     Indication: CEREBRAL INFARCTION
     Dosage: 100 MG, DAILY DOSE ORAL
     Route: 048
     Dates: end: 20090917
  3. ANPLAG (SARPOGRELATE HYDROCHLORIDE) TABLET [Suspect]
     Indication: ARTERIAL OCCLUSIVE DISEASE
     Dosage: 100 MG, TID; ORAL
     Route: 048
     Dates: start: 20090926
  4. UNASYN [Suspect]
     Indication: PNEUMONIA
     Dosage: 0.75 MG, BID; INTRAVENOUS
     Route: 042
     Dates: start: 20090912, end: 20090920
  5. VANCOMYCIN HYDROCHLORIDE [Suspect]
     Indication: STAPHYLOCOCCAL INFECTION
     Dosage: 0.5 G, BID; INTRAVENOUS ; 0.5 G, BID; INTRAVENOUS
     Route: 042
     Dates: start: 20090921, end: 20090923
  6. VANCOMYCIN HYDROCHLORIDE [Suspect]
     Indication: STAPHYLOCOCCAL INFECTION
     Dosage: 0.5 G, BID; INTRAVENOUS ; 0.5 G, BID; INTRAVENOUS
     Route: 042
     Dates: start: 20090925, end: 20090928
  7. PACETCOOL (CEFOTIAM HYDROCHLORIDE) [Concomitant]
  8. LOXONIN (LOXOPROFEN SODIUM) [Concomitant]
  9. DEPAKENE-R JPN (VALPROATE SODIUM) [Concomitant]
  10. MAGNESIUM OXIDE (MAGNESIUM OXIDE) [Concomitant]
  11. DEPAS (ETIZOLAM) [Concomitant]
  12. SEROQUEL [Concomitant]
  13. CLONAZEPAM [Concomitant]
  14. PROMAC (POLAPREZINC) [Concomitant]
  15. LIPITOR [Concomitant]
  16. CONIEL (BENIDIPINE HYDROCHLORIDE) [Concomitant]
  17. FAMOTIDINE [Concomitant]
  18. SIGMART (NICORANDIL) [Concomitant]

REACTIONS (9)
  - ASPIRATION [None]
  - DISBACTERIOSIS [None]
  - GASTROSTOMY [None]
  - HAEMORRHAGIC DIATHESIS [None]
  - PNEUMONIA [None]
  - PYREXIA [None]
  - RESPIRATORY FAILURE [None]
  - STAPHYLOCOCCAL INFECTION [None]
  - VITAMIN K DECREASED [None]
